FAERS Safety Report 10923598 (Version 2)
Quarter: 2015Q2

REPORT INFORMATION
  Report Type: Spontaneous
  Country: US (occurrence: US)
  Receive Date: 20150318
  Receipt Date: 20150526
  Transmission Date: 20150821
  Serious: No
  Sender: FDA-Public Use
  Company Number: US-JNJFOC-20140114026

PATIENT

DRUGS (4)
  1. HALOPERIDOL DECANOATE. [Suspect]
     Active Substance: HALOPERIDOL DECANOATE
     Indication: SCHIZOAFFECTIVE DISORDER
     Route: 030
  2. ARIPIPRAZOLE. [Concomitant]
     Active Substance: ARIPIPRAZOLE
     Indication: PRODUCT USED FOR UNKNOWN INDICATION
     Route: 065
  3. LITHIUM. [Concomitant]
     Active Substance: LITHIUM
     Indication: DRUG THERAPY
     Route: 065
  4. HALOPERIDOL. [Concomitant]
     Active Substance: HALOPERIDOL
     Indication: SCHIZOAFFECTIVE DISORDER
     Route: 048

REACTIONS (11)
  - Appetite disorder [Unknown]
  - Muscle twitching [Unknown]
  - Dry mouth [Unknown]
  - Injection site reaction [Unknown]
  - Micturition disorder [Unknown]
  - Sedation [Unknown]
  - Headache [Unknown]
  - Sexual dysfunction [Unknown]
  - Vision blurred [Unknown]
  - Akathisia [Unknown]
  - Gastrointestinal disorder [Unknown]
